FAERS Safety Report 25836803 (Version 1)
Quarter: 2025Q3

REPORT INFORMATION
  Report Type: Other
  Country: US (occurrence: US)
  Receive Date: 20250923
  Receipt Date: 20250923
  Transmission Date: 20251021
  Serious: Yes (Other)
  Sender: SIGMA TAU
  Company Number: US-LEADIANT GMBH-2024LBI000374

PATIENT
  Sex: Female
  Weight: 56.236 kg

DRUGS (9)
  1. MATULANE [Suspect]
     Active Substance: PROCARBAZINE HYDROCHLORIDE
     Indication: Oligodendroglioma
     Route: 048
     Dates: start: 20240613
  2. VINCRISTINE [Concomitant]
     Active Substance: VINCRISTINE
     Indication: Oligodendroglioma
  3. LOMUSTINE [Concomitant]
     Active Substance: LOMUSTINE
     Indication: Oligodendroglioma
  4. GABAPENTIN [Concomitant]
     Active Substance: GABAPENTIN
     Indication: Neurological symptom
  5. KEPPRA [Concomitant]
     Active Substance: LEVETIRACETAM
     Indication: Neurological symptom
  6. LORAZEPAM [Concomitant]
     Active Substance: LORAZEPAM
     Indication: Neurological symptom
  7. DEXAMETHASONE [Concomitant]
     Active Substance: DEXAMETHASONE
     Indication: Drug hypersensitivity
  8. PANTOPRAZOLE [Concomitant]
     Active Substance: PANTOPRAZOLE
     Indication: Drug hypersensitivity
  9. ZOFRAN [Concomitant]
     Active Substance: ONDANSETRON HYDROCHLORIDE
     Indication: Drug hypersensitivity

REACTIONS (2)
  - Rash [Recovered/Resolved]
  - Urticaria [Recovered/Resolved]
